FAERS Safety Report 24105915 (Version 2)
Quarter: 2025Q1

REPORT INFORMATION
  Report Type: Spontaneous
  Country: US (occurrence: US)
  Receive Date: 20240717
  Receipt Date: 20250131
  Transmission Date: 20250408
  Serious: Yes (Hospitalization)
  Sender: ROCHE
  Company Number: US-ROCHE-10000027555

PATIENT
  Age: 63 Year
  Sex: Male

DRUGS (1)
  1. ALECENSA [Suspect]
     Active Substance: ALECTINIB HYDROCHLORIDE
     Indication: Lung neoplasm malignant
     Dosage: STRENGTH: 150MG
     Route: 048

REACTIONS (4)
  - COVID-19 [Unknown]
  - Pneumonia [Unknown]
  - Nasopharyngitis [Unknown]
  - Respiratory syncytial virus infection [Unknown]
